FAERS Safety Report 9222078 (Version 1)
Quarter: 2013Q2

REPORT INFORMATION
  Report Type: Spontaneous
  Country: US (occurrence: None)
  Receive Date: 20130408
  Receipt Date: 20130408
  Transmission Date: 20140414
  Serious: Yes (Other)
  Sender: FDA-Public Use
  Company Number: FK201301092

PATIENT
  Sex: 0

DRUGS (1)
  1. PIPERACILLIN AND TAZOBACTAM FOR INJECTION (PIPERACILLIN/TAZOBACTAM) [Suspect]
     Indication: PRODUCT USED FOR UNKNOWN INDICATION
     Dates: start: 20130225

REACTIONS (2)
  - Laceration [None]
  - Product packaging issue [None]
